FAERS Safety Report 8397236-4 (Version None)
Quarter: 2012Q2

REPORT INFORMATION
  Report Type: 
  Country: None (occurrence: None)
  Receive Date: 20120530
  Receipt Date: 20120521
  Transmission Date: 20120825
  Serious: Yes (Other)
  Sender: FDA-Public Use
  Company Number: DK-AMGEN-DNKSP2012032498

PATIENT
  Age: 79 Year
  Sex: Female
  Weight: 42 kg

DRUGS (7)
  1. ACETAMINOPHEN [Concomitant]
     Dosage: TABLET 500 MG, 2+2+2+0 PIECE
     Route: 048
  2. ENBREL [Suspect]
     Indication: RHEUMATOID ARTHRITIS
     Dosage: 50 MG, WEEKLY
     Route: 058
     Dates: start: 20101001, end: 20120302
  3. OPTINATE SEPTIMUM [Concomitant]
     Dosage: TABLETS 35 MG, EVERY WEEK, AS AGREED
     Route: 048
  4. DIGOXIN [Concomitant]
     Dosage: TABLET 62,5 MIKG, 2+0+0+0 PIECE
     Route: 048
  5. TRAMADOL HCL [Concomitant]
     Dosage: TABLET 50 MG, 1+1+1+0 PIECE
     Route: 048
  6. POTASSIUM CHLORIDE [Concomitant]
     Dosage: SLOW RELEASE TABLET 750 MG, 1+0+0+0 PIECE
     Route: 048
  7. DIURAL                             /00032601/ [Concomitant]
     Dosage: TABLET 20 MG, 1+1+0+0 PIECE
     Route: 048
     Dates: end: 20120329

REACTIONS (1)
  - BONE MARROW FAILURE [None]
